FAERS Safety Report 5847518-2 (Version None)
Quarter: 2008Q3

REPORT INFORMATION
  Report Type: 
  Country: None (occurrence: None)
  Receive Date: 20080814
  Receipt Date: 20080806
  Transmission Date: 20090109
  Serious: Yes (Disabling)
  Sender: FDA-Public Use
  Company Number: OSCN-PR-0808S-0482

PATIENT
  Sex: Male

DRUGS (2)
  1. OMNISCAN (GADODIAMINE) [Suspect]
     Indication: DRUG USE FOR UNKNOWN INDICATION
     Dosage: SINGLE DOSE, I.V.
     Route: 042
     Dates: start: 20060831, end: 20060831
  2. GADOPENTETATE DIMEGLUMINE (MAGNEVIST) [Concomitant]

REACTIONS (5)
  - FIBROSIS [None]
  - JOINT EFFUSION [None]
  - LEG AMPUTATION [None]
  - OEDEMA [None]
  - OEDEMA PERIPHERAL [None]
